FAERS Safety Report 9715443 (Version 4)
Quarter: 2014Q1

REPORT INFORMATION
  Report Type: Report from Study
  Country: CA (occurrence: CA)
  Receive Date: 20131127
  Receipt Date: 20140106
  Transmission Date: 20141002
  Serious: Yes (Other)
  Sender: FDA-Public Use
  Company Number: CA-ROCHE-1148793

PATIENT
  Age: 49 Year
  Sex: Female
  Weight: 90.7 kg

DRUGS (13)
  1. RITUXAN [Suspect]
     Indication: RHEUMATOID ARTHRITIS
     Route: 042
     Dates: start: 20121012
  2. RITUXAN [Suspect]
     Route: 042
     Dates: start: 20131104, end: 20131104
  3. CELEBREX [Concomitant]
  4. ARAVA [Concomitant]
  5. PARIET [Concomitant]
  6. OLMETEC [Concomitant]
  7. ALANASE [Concomitant]
     Route: 045
  8. DIPHENHYDRAMINE HCL [Concomitant]
     Route: 048
     Dates: start: 20121012
  9. ACETAMINOPHEN [Concomitant]
     Route: 048
     Dates: start: 20121012
  10. METHYLPREDNISOLONE [Concomitant]
     Route: 042
     Dates: start: 20121012
  11. SYMBICORT [Concomitant]
     Route: 065
  12. VENTOLIN [Concomitant]
     Route: 065
  13. CLARITIN [Concomitant]
     Route: 065

REACTIONS (11)
  - Ataxia [Unknown]
  - Infusion related reaction [Recovered/Resolved]
  - Fatigue [Recovered/Resolved]
  - Dizziness [Recovering/Resolving]
  - Feeling hot [Recovered/Resolved]
  - Blood pressure increased [Recovering/Resolving]
  - Arthralgia [Not Recovered/Not Resolved]
  - Nasopharyngitis [Not Recovered/Not Resolved]
  - Somnolence [Unknown]
  - Cough [Unknown]
  - Perfume sensitivity [Unknown]
